FAERS Safety Report 7949358-7 (Version None)
Quarter: 2011Q4

REPORT INFORMATION
  Report Type: 
  Country: None (occurrence: None)
  Receive Date: 20111130
  Receipt Date: 20111122
  Transmission Date: 20120403
  Serious: Yes (Death, Hospitalization)
  Sender: FDA-Public Use
  Company Number: US-GLAXOSMITHKLINE-A0852500A

PATIENT
  Age: 65 Year
  Sex: Female
  Weight: 82.7 kg

DRUGS (7)
  1. ENALAPRIL MALEATE [Concomitant]
  2. LEVOTHYROXINE SODIUM [Concomitant]
  3. AVANDIA [Suspect]
     Indication: DIABETES MELLITUS
     Dosage: 8MG PER DAY
     Route: 048
     Dates: start: 20060801, end: 20070501
  4. METFORMIN HCL [Concomitant]
  5. AVANDAMET [Suspect]
     Indication: DIABETES MELLITUS
     Route: 048
     Dates: start: 20060901, end: 20060901
  6. GLIPIZIDE [Concomitant]
  7. LOVASTATIN [Concomitant]

REACTIONS (6)
  - HYPOXIC-ISCHAEMIC ENCEPHALOPATHY [None]
  - MYOCARDIAL INFARCTION [None]
  - RESPIRATORY FAILURE [None]
  - CARDIAC FAILURE CONGESTIVE [None]
  - PNEUMONITIS [None]
  - CORONARY ARTERY DISEASE [None]
